FAERS Safety Report 16924247 (Version 1)
Quarter: 2019Q4

REPORT INFORMATION
  Report Type: Spontaneous
  Country: CH (occurrence: CH)
  Receive Date: 20191016
  Receipt Date: 20191016
  Transmission Date: 20200122
  Serious: Yes (Other)
  Sender: FDA-Public Use
  Company Number: CH-PFIZER INC-2019438580

PATIENT
  Sex: Male

DRUGS (3)
  1. PROCARBAZINE [Suspect]
     Active Substance: PROCARBAZINE
     Indication: CHEMOTHERAPY
     Dosage: UNK UNK, CYCLIC (6 CYCLES PCV CHEMOTHERAPY (CYCLE 5 AND 6 W/O VINCRISTINE))
     Dates: start: 20160401, end: 20161204
  2. VINCRISTINE SULFATE. [Suspect]
     Active Substance: VINCRISTINE SULFATE
     Indication: CHEMOTHERAPY
     Dosage: UNK UNK, CYCLIC (6 CYCLES PCV CHEMOTHERAPY (CYCLE 5 AND 6 W/O VINCRISTINE))
     Dates: start: 20160401, end: 20161204
  3. LOMUSTINE. [Suspect]
     Active Substance: LOMUSTINE
     Indication: CHEMOTHERAPY
     Dosage: UNK UNK, CYCLIC (6 CYCLES PCV CHEMOTHERAPY (CYCLE 5 AND 6 W/O VINCRISTINE))
     Dates: start: 20160401, end: 20161204

REACTIONS (2)
  - Toxicity to various agents [Unknown]
  - Peripheral sensory neuropathy [Unknown]

NARRATIVE: CASE EVENT DATE: 2016
